FAERS Safety Report 7083070 (Version 2)
Quarter: 2014Q3

REPORT INFORMATION
  Report Type: Spontaneous
  Country: US (occurrence: None)
  Receive Date: 20090803
  Receipt Date: 20140702
  Transmission Date: 20150326
  Serious: Yes (Hospitalization, Other)
  Sender: FDA-Public Use
  Company Number: 2009S1005918

PATIENT
  Age: 62 Year
  Sex: Female
  Weight: 68.04 kg

DRUGS (6)
  1. PREVACID [Concomitant]
     Active Substance: LANSOPRAZOLE
  2. LISINOPRIL (LISINOPRIL) [Concomitant]
     Active Substance: LISINOPRIL
  3. DULCOLAX [Suspect]
     Active Substance: BISACODYL OR DOCUSATE SODIUM
  4. PHOSPHO-SODA [Suspect]
     Active Substance: SODIUM PHOSPHATE, DIBASIC\SODIUM PHOSPHATE, MONOBASIC
     Indication: COLONOSCOPY
     Dosage: PO
     Route: 048
     Dates: start: 200603, end: 200603
  5. ZOCOR [Concomitant]
     Active Substance: SIMVASTATIN
  6. BABY ASPIRIN (ACETYLSALICYLIC ACID) [Concomitant]
     Active Substance: ASPIRIN

REACTIONS (14)
  - Sepsis [None]
  - Dyspnoea exertional [None]
  - Dizziness [None]
  - Renal failure chronic [None]
  - Diverticulum [None]
  - Palpitations [None]
  - Chills [None]
  - Fluid intake reduced [None]
  - Decreased appetite [None]
  - Abdominal distension [None]
  - Feeling hot [None]
  - Hypotension [None]
  - Supraventricular tachycardia [None]
  - Renal tubular necrosis [None]

NARRATIVE: CASE EVENT DATE: 20060306
